FAERS Safety Report 6290328-5 (Version None)
Quarter: 2009Q3

REPORT INFORMATION
  Report Type: 
  Country: None (occurrence: None)
  Receive Date: 20090730
  Receipt Date: 20090305
  Transmission Date: 20100115
  Serious: Yes (Other)
  Sender: FDA-Public Use
  Company Number: US-BRISTOL-MYERS SQUIBB COMPANY-14522650

PATIENT
  Age: 82 Year
  Sex: Female
  Weight: 81 kg

DRUGS (5)
  1. COUMADIN [Suspect]
     Indication: PULMONARY THROMBOSIS
     Dates: start: 20090215
  2. PLAVIX [Suspect]
     Indication: ANTIPLATELET THERAPY
  3. LIPITOR [Concomitant]
     Dosage: TAKEN FOR 5-6 YEARS
  4. OMEPRAZOLE [Concomitant]
     Dosage: FOR SEVERAL YEARS
  5. LISINOPRIL [Concomitant]
     Dosage: DECREASED TO 5MG DAILY SINCE HOSPITALIZATION (02/2009).

REACTIONS (1)
  - SWELLING [None]
